FAERS Safety Report 19115769 (Version 1)
Quarter: 2021Q2

REPORT INFORMATION
  Report Type: Report from Study
  Country: IT (occurrence: IT)
  Receive Date: 20210409
  Receipt Date: 20210409
  Transmission Date: 20210717
  Serious: Yes (Other)
  Sender: FDA-Public Use
  Company Number: IT-TEVA-2021-IT-1898869

PATIENT
  Age: 59 Year
  Sex: Female

DRUGS (3)
  1. KARVEA [Concomitant]
     Active Substance: IRBESARTAN
  2. SIMVASTATIN. [Suspect]
     Active Substance: SIMVASTATIN
     Route: 065
  3. CARDIOASPIRIN [Concomitant]
     Active Substance: ASPIRIN

REACTIONS (2)
  - Arthralgia [Unknown]
  - Injury [Unknown]

NARRATIVE: CASE EVENT DATE: 20200802
